FAERS Safety Report 21517791 (Version 1)
Quarter: 2022Q4

REPORT INFORMATION
  Report Type: Spontaneous
  Country: US (occurrence: US)
  Receive Date: 20221028
  Receipt Date: 20221028
  Transmission Date: 20230112
  Serious: No
  Sender: FDA-Public Use
  Company Number: US-BRISTOL-MYERS SQUIBB COMPANY-2022-128159

PATIENT
  Age: 36 Year
  Sex: Female

DRUGS (2)
  1. SPRYCEL [Suspect]
     Active Substance: DASATINIB
     Indication: Acute lymphocytic leukaemia
     Route: 048
     Dates: start: 202208
  2. SPRYCEL [Suspect]
     Active Substance: DASATINIB
     Route: 065

REACTIONS (3)
  - Peripheral swelling [Unknown]
  - Fatigue [Unknown]
  - Rash [Unknown]
